FAERS Safety Report 8347433-9 (Version None)
Quarter: 2012Q2

REPORT INFORMATION
  Report Type: 
  Country: None (occurrence: None)
  Receive Date: 20120509
  Receipt Date: 20120424
  Transmission Date: 20120825
  Serious: Yes (Other)
  Sender: FDA-Public Use
  Company Number: IT-ROCHE-1063054

PATIENT

DRUGS (1)
  1. RANIBIZUMAB [Suspect]
     Indication: AGE-RELATED MACULAR DEGENERATION

REACTIONS (12)
  - VITREOUS HAEMORRHAGE [None]
  - EMBOLISM ARTERIAL [None]
  - EMBOLISM VENOUS [None]
  - RETINAL DETACHMENT [None]
  - RETINAL TEAR [None]
  - HAEMORRHAGE [None]
  - MYOCARDIAL INFARCTION [None]
  - ENDOPHTHALMITIS [None]
  - EYE INFLAMMATION [None]
  - RETINAL PIGMENT EPITHELIAL TEAR [None]
  - INTRAOCULAR PRESSURE INCREASED [None]
  - RETINAL ISCHAEMIA [None]
